FAERS Safety Report 6015180-4 (Version None)
Quarter: 2008Q4

REPORT INFORMATION
  Report Type: 
  Country: None (occurrence: None)
  Receive Date: 20081218
  Receipt Date: 20081210
  Transmission Date: 20090506
  Serious: Yes (Other)
  Sender: FDA-Public Use
  Company Number: CHPA2008US21939

PATIENT
  Age: 63 Year
  Sex: Female

DRUGS (3)
  1. EXCEDRIN (MIGRAINE) [Suspect]
     Indication: ANALGESIA
     Dosage: 2 DF, BID, ORAL
     Route: 048
     Dates: start: 20040101
  2. EXCEDRIN (MIGRAINE) [Suspect]
     Indication: ARTHRITIS
     Dosage: 2 DF, BID, ORAL
     Route: 048
     Dates: start: 20040101
  3. PERCOCET [Suspect]
     Indication: ANALGESIA
     Dosage: 1 DF, BID, ORAL
     Route: 048
     Dates: start: 20081209

REACTIONS (2)
  - DRUG ADMINISTRATION ERROR [None]
  - KNEE OPERATION [None]
